FAERS Safety Report 13748866 (Version 1)
Quarter: 2017Q3

REPORT INFORMATION
  Report Type: Spontaneous
  Country: CN (occurrence: CN)
  Receive Date: 20170713
  Receipt Date: 20170713
  Transmission Date: 20171127
  Serious: Yes (Other)
  Sender: FDA-Public Use
  Company Number: CN-BAXTER-2017BAX027393

PATIENT
  Age: 36 Year
  Sex: Female
  Weight: 50 kg

DRUGS (5)
  1. 5% GLUCOSE  INJECTION [Suspect]
     Active Substance: DEXTROSE
     Indication: MEDICATION DILUTION
     Route: 041
     Dates: start: 20170418, end: 20170418
  2. ENDOXAN [Suspect]
     Active Substance: CYCLOPHOSPHAMIDE
     Dosage: SECOND CYCLE
     Route: 041
     Dates: start: 20170418, end: 20170418
  3. PHARMORUBICIN [Suspect]
     Active Substance: EPIRUBICIN
     Dosage: SECOND CYCLE
     Route: 041
     Dates: start: 20170418, end: 20170418
  4. ENDOXAN [Suspect]
     Active Substance: CYCLOPHOSPHAMIDE
     Indication: CHEMOTHERAPY
     Dosage: FIRST CYCLE
     Route: 041
  5. PHARMORUBICIN [Suspect]
     Active Substance: EPIRUBICIN
     Indication: CHEMOTHERAPY
     Dosage: FIRST CYCLE
     Route: 041

REACTIONS (1)
  - Leukopenia [Recovered/Resolved]

NARRATIVE: CASE EVENT DATE: 20170427
